FAERS Safety Report 12336752 (Version 1)
Quarter: 2016Q2

REPORT INFORMATION
  Report Type: Spontaneous
  Country: US (occurrence: None)
  Receive Date: 20160504
  Receipt Date: 20160504
  Transmission Date: 20160815
  Serious: Yes (Death, Other)
  Sender: FDA-Public Use
  Company Number: None

PATIENT
  Age: 63 Year
  Sex: Male
  Weight: 64.41 kg

DRUGS (13)
  1. HALDOL [Suspect]
     Active Substance: HALOPERIDOL
  2. ASPIRATING FEEDING TUBE [Concomitant]
  3. WARFARIN [Suspect]
     Active Substance: WARFARIN
     Indication: PRODUCT USED FOR UNKNOWN INDICATION
     Dates: start: 20151223, end: 20160127
  4. COUMADIN [Suspect]
     Active Substance: WARFARIN SODIUM
  5. PANADOL [Suspect]
     Active Substance: ACETAMINOPHEN
  6. PEG IN STOMACH [Concomitant]
  7. HEPARIN [Suspect]
     Active Substance: HEPARIN SODIUM
  8. DEXTROSE. [Suspect]
     Active Substance: DEXTROSE
  9. OXYGEN. [Concomitant]
     Active Substance: OXYGEN
  10. CENTRUM SILVER [Concomitant]
     Active Substance: MINERALS\VITAMINS
  11. VICODIN [Suspect]
     Active Substance: ACETAMINOPHEN\HYDROCODONE BITARTRATE
  12. MECHANICAL VENTERLATOR [Concomitant]
  13. FEEDING TUBE [Concomitant]

REACTIONS (4)
  - Brain injury [None]
  - Skin discolouration [None]
  - Cerebrovascular accident [None]
  - Myocardial infarction [None]

NARRATIVE: CASE EVENT DATE: 20160104
